FAERS Safety Report 7011801-8 (Version None)
Quarter: 2010Q3

REPORT INFORMATION
  Report Type: 
  Country: None (occurrence: None)
  Receive Date: 20100923
  Receipt Date: 20090819
  Transmission Date: 20110219
  Serious: No
  Sender: FDA-Public Use
  Company Number: US-WYE-H10658809

PATIENT
  Age: 24 Year
  Sex: Female
  Weight: 45.4 kg

DRUGS (1)
  1. ADVIL COLD AND SINUS [Suspect]
     Indication: DYSMENORRHOEA
     Dosage: 2 CAPLETS EVERY 2-4 HOURS AS NEEDED
     Route: 048
     Dates: start: 20090818

REACTIONS (2)
  - INCORRECT DOSE ADMINISTERED [None]
  - TREMOR [None]
